FAERS Safety Report 4684865-4 (Version None)
Quarter: 2005Q2

REPORT INFORMATION
  Report Type: 
  Country: None (occurrence: None)
  Receive Date: 20050527
  Receipt Date: 20050309
  Transmission Date: 20051028
  Serious: No
  Sender: FDA-Public Use
  Company Number: PHEH2005US02981

PATIENT
  Age: 56 Year
  Sex: Female

DRUGS (4)
  1. ZELNORM [Suspect]
     Indication: IRRITABLE BOWEL SYNDROME
     Dosage: 6 MG, BID, ORAL
     Route: 048
     Dates: start: 20030201, end: 20031201
  2. LIPITOR [Concomitant]
  3. ZOLOFT [Concomitant]
  4. BUSPAR [Concomitant]

REACTIONS (1)
  - AGORAPHOBIA [None]
